FAERS Safety Report 11731401 (Version 1)
Quarter: 2015Q4

REPORT INFORMATION
  Report Type: Spontaneous
  Country: US (occurrence: US)
  Receive Date: 20151110
  Receipt Date: 20151110
  Transmission Date: 20160304
  Serious: No
  Sender: FDA-Public Use
  Company Number: US-ELI_LILLY_AND_COMPANY-US201202008267

PATIENT
  Sex: Female

DRUGS (1)
  1. FORTEO [Suspect]
     Active Substance: TERIPARATIDE
     Indication: OSTEOPOROSIS
     Dosage: UNK, UNKNOWN

REACTIONS (23)
  - Fibromyalgia [Not Recovered/Not Resolved]
  - Abdominal discomfort [Unknown]
  - Oral mucosal blistering [Unknown]
  - Muscle spasms [Recovered/Resolved]
  - Multiple fractures [Unknown]
  - Memory impairment [Unknown]
  - Ear infection [Unknown]
  - Pain [Unknown]
  - Gastric disorder [Unknown]
  - Arthralgia [Unknown]
  - Cough [Unknown]
  - Osteoarthritis [Unknown]
  - Choking [Unknown]
  - Gastrointestinal disorder [Unknown]
  - Nausea [Unknown]
  - Weight decreased [Unknown]
  - Weight abnormal [Unknown]
  - Stomatitis [Unknown]
  - Lip blister [Unknown]
  - Upper respiratory tract infection [Unknown]
  - Constipation [Unknown]
  - Dyspepsia [Unknown]
  - Intentional product misuse [Unknown]

NARRATIVE: CASE EVENT DATE: 2010
